FAERS Safety Report 8486249-X (Version None)
Quarter: 2012Q3

REPORT INFORMATION
  Report Type: 
  Country: None (occurrence: None)
  Receive Date: 20120703
  Receipt Date: 20120625
  Transmission Date: 20120928
  Serious: Yes (Hospitalization)
  Sender: FDA-Public Use
  Company Number: US-ABBOTT-12P-163-0949861-00

PATIENT
  Age: 69 Year
  Sex: Male

DRUGS (12)
  1. ZETIA [Concomitant]
     Indication: BLOOD CHOLESTEROL INCREASED
  2. ASPIRIN [Concomitant]
     Indication: CARDIAC DISORDER
  3. BYSTOLIC [Concomitant]
     Indication: BLOOD CHOLESTEROL INCREASED
  4. NORCO [Concomitant]
     Indication: PANCREATITIS
     Dosage: 10/325MG 2 TABLETS Q4H PRN
  5. NORCO [Concomitant]
     Indication: PAIN
  6. HUMIRA [Suspect]
     Indication: CROHN'S DISEASE
     Dosage: 160MG LOADING DOSE
     Dates: start: 20120612
  7. TRILIPIX [Concomitant]
     Indication: BLOOD CHOLESTEROL INCREASED
  8. LIPITOR [Concomitant]
     Indication: BLOOD CHOLESTEROL INCREASED
  9. CLONIDINE [Concomitant]
     Indication: BLOOD CHOLESTEROL INCREASED
  10. NORCO [Concomitant]
     Indication: ABDOMINAL PAIN
  11. XANAX [Concomitant]
     Indication: INSOMNIA
  12. FIORICET [Concomitant]
     Indication: HEADACHE
     Dosage: UP TO 6 TABLETS PRN

REACTIONS (8)
  - NUCLEAR MAGNETIC RESONANCE IMAGING ABNORMAL [None]
  - AMYLASE INCREASED [None]
  - LIPASE INCREASED [None]
  - PANCREATIC DUCT OBSTRUCTION [None]
  - ASTHENIA [None]
  - HYPOPHAGIA [None]
  - FOOD INTOLERANCE [None]
  - ABDOMINAL DISCOMFORT [None]
